FAERS Safety Report 12718201 (Version 2)
Quarter: 2016Q3

REPORT INFORMATION
  Report Type: Spontaneous
  Country: US (occurrence: US)
  Receive Date: 20160906
  Receipt Date: 20160930
  Transmission Date: 20161109
  Serious: Yes (Death, Hospitalization, Other)
  Sender: FDA-Public Use
  Company Number: US-JNJFOC-20160900005

PATIENT

DRUGS (3)
  1. RIBAVIRIN. [Suspect]
     Active Substance: RIBAVIRIN
     Indication: CHRONIC HEPATITIS C
     Dosage: DOSE DEPENDING ON WEIGHT OF THE PATIENT
     Route: 065
  2. SOFOSBUVIR [Suspect]
     Active Substance: SOFOSBUVIR
     Indication: CHRONIC HEPATITIS C
     Route: 065
  3. SIMEPREVIR [Suspect]
     Active Substance: SIMEPREVIR
     Indication: CHRONIC HEPATITIS C
     Route: 065

REACTIONS (8)
  - Product use issue [Unknown]
  - Hepatic encephalopathy [Unknown]
  - Hospitalisation [Unknown]
  - Remission not achieved [Unknown]
  - Off label use [Unknown]
  - Fluid overload [Unknown]
  - Death [Fatal]
  - Hepatocellular carcinoma [Unknown]
